FAERS Safety Report 8171848-5 (Version None)
Quarter: 2012Q1

REPORT INFORMATION
  Report Type: 
  Country: None (occurrence: None)
  Receive Date: 20120228
  Receipt Date: 20120221
  Transmission Date: 20120608
  Serious: Yes (Other)
  Sender: FDA-Public Use
  Company Number: AU-ABBOTT-11P-008-0836883-00

PATIENT
  Sex: Female
  Weight: 51 kg

DRUGS (9)
  1. STEROIDS [Concomitant]
     Indication: PRODUCT USED FOR UNKNOWN INDICATION
  2. CIPROFLOXACIN [Concomitant]
     Indication: PRODUCT USED FOR UNKNOWN INDICATION
  3. HUMIRA [Suspect]
  4. METRONIDAZOLE [Concomitant]
     Indication: PRODUCT USED FOR UNKNOWN INDICATION
  5. HUMIRA [Suspect]
  6. HUMIRA [Suspect]
  7. AZATHIOPRINE [Concomitant]
     Indication: PRODUCT USED FOR UNKNOWN INDICATION
  8. ALLOPURINOL [Concomitant]
     Indication: PRODUCT USED FOR UNKNOWN INDICATION
  9. HUMIRA [Suspect]
     Indication: CROHN'S DISEASE
     Dates: start: 20100101

REACTIONS (7)
  - ILEOSTOMY CLOSURE [None]
  - DEPRESSED MOOD [None]
  - ANORECTAL DISORDER [None]
  - ILEOSTOMY [None]
  - COLECTOMY TOTAL [None]
  - ERYTHEMA NODOSUM [None]
  - PROCTOCOLITIS [None]
